FAERS Safety Report 10201506 (Version 2)
Quarter: 2015Q1

REPORT INFORMATION
  Report Type: Spontaneous
  Country: US (occurrence: US)
  Receive Date: 20140528
  Receipt Date: 20150116
  Transmission Date: 20150720
  Serious: Yes (Congenital Anomaly, Other)
  Sender: FDA-Public Use
  Company Number: US-ELI_LILLY_AND_COMPANY-US201405006874

PATIENT

DRUGS (6)
  1. TERBUTALINE [Concomitant]
     Active Substance: TERBUTALINE
     Indication: PREMATURE LABOUR
     Dosage: 5 MG, EVERY 4 HRS
     Route: 064
  2. PROZAC [Suspect]
     Active Substance: FLUOXETINE HYDROCHLORIDE
     Indication: PRODUCT USED FOR UNKNOWN INDICATION
     Dosage: UNK
     Route: 064
  3. ROBITUSSIN DM                      /00288801/ [Concomitant]
     Indication: COUGH
     Dosage: UNK
     Route: 064
  4. FOLATE [Concomitant]
     Active Substance: FOLATE SODIUM
     Dosage: 1 DF, UNK
     Route: 064
  5. HYCODAN                            /00060002/ [Concomitant]
     Indication: PRODUCT USED FOR UNKNOWN INDICATION
     Route: 064
  6. FEMASTAT [Concomitant]
     Indication: FUNGAL INFECTION
     Route: 064

REACTIONS (4)
  - Atrial septal defect [Recovered/Resolved]
  - Premature baby [Recovered/Resolved]
  - Pulmonary valve stenosis congenital [Recovered/Resolved with Sequelae]
  - Foetal exposure during pregnancy [Recovered/Resolved with Sequelae]
